FAERS Safety Report 8005126-1 (Version None)
Quarter: 2011Q4

REPORT INFORMATION
  Report Type: 
  Country: None (occurrence: None)
  Receive Date: 20111223
  Receipt Date: 20111213
  Transmission Date: 20120403
  Serious: Yes (Hospitalization, Other)
  Sender: FDA-Public Use
  Company Number: PHHY2011AU108531

PATIENT
  Age: 61 Year
  Sex: Female

DRUGS (5)
  1. CLOZAPINE [Suspect]
     Dosage: 175 MG (50 MG MANE, 125 MG NOCTE),
  2. ARIPIPRAZOLE [Concomitant]
     Dosage: 30 MG, UNK
  3. CLOZAPINE [Suspect]
     Dosage: 400 MG/DAY
     Dates: start: 19940101
  4. OLANZAPINE [Concomitant]
  5. VALPROATE SODIUM [Concomitant]
     Dosage: 1500 MG/DAY

REACTIONS (7)
  - URINARY TRACT INFECTION [None]
  - DIABETIC ENCEPHALOPATHY [None]
  - CONFUSIONAL STATE [None]
  - AGITATION [None]
  - ELECTROCARDIOGRAM QT PROLONGED [None]
  - MYOCARDIAL INFARCTION [None]
  - CATATONIA [None]
